FAERS Safety Report 9783964 (Version 1)
Quarter: 2013Q4

REPORT INFORMATION
  Report Type: Spontaneous
  Country: US (occurrence: US)
  Receive Date: 20131226
  Receipt Date: 20131226
  Transmission Date: 20140711
  Serious: Yes (Other)
  Sender: FDA-Public Use
  Company Number: US-PFIZER INC-2013364232

PATIENT
  Sex: Male

DRUGS (3)
  1. LYRICA [Suspect]
     Indication: FIBROMYALGIA
     Dosage: 75 MG, UNK
  2. LYRICA [Suspect]
     Dosage: 150 MG, UNK
  3. LYRICA [Suspect]
     Dosage: 100 MG, UNK

REACTIONS (8)
  - Skin exfoliation [Unknown]
  - Skin lesion [Unknown]
  - Abscess [Unknown]
  - Folliculitis [Unknown]
  - Pruritus [Unknown]
  - Skin disorder [Unknown]
  - Electrocardiogram abnormal [Unknown]
  - Hyperhidrosis [Unknown]
